FAERS Safety Report 7232899-8 (Version None)
Quarter: 2011Q1

REPORT INFORMATION
  Report Type: 
  Country: None (occurrence: None)
  Receive Date: 20110119
  Receipt Date: 20110107
  Transmission Date: 20110831
  Serious: Yes (Other)
  Sender: FDA-Public Use
  Company Number: PHHY2010DE82119

PATIENT

DRUGS (2)
  1. EXJADE [Suspect]
     Indication: HAEMOSIDEROSIS
     Dosage: 1000 MG DAILY
     Route: 048
     Dates: start: 20061017, end: 20090830
  2. EXJADE [Suspect]
     Indication: IRON OVERLOAD

REACTIONS (1)
  - COLITIS ULCERATIVE [None]
